FAERS Safety Report 8744251 (Version 3)
Quarter: 2012Q4

REPORT INFORMATION
  Report Type: 
  Country: US (occurrence: US)
  Receive Date: 20120824
  Receipt Date: 20121002
  Transmission Date: 20130627
  Serious: Yes (Hospitalization)
  Sender: FDA-Public Use
  Company Number: CHPA2012US018657

PATIENT
  Age: 70 Year
  Sex: Male

DRUGS (2)
  1. GAS-X EXTRA STRENGTH [Suspect]
     Indication: FLATULENCE
     Dosage: Unk, Unk
     Route: 048
  2. GAS-X EXTRA STRENGTH [Suspect]
     Dosage: 2 DF, PRN
     Route: 048
     Dates: start: 2010

REACTIONS (6)
  - Large intestine perforation [Recovered/Resolved]
  - Disease recurrence [Unknown]
  - Drug ineffective [Unknown]
  - Treatment noncompliance [None]
  - Incorrect dose administered [None]
  - Product quality issue [None]
